FAERS Safety Report 15208894 (Version 2)
Quarter: 2018Q3

REPORT INFORMATION
  Report Type: Report from Study
  Country: CA (occurrence: CA)
  Receive Date: 20180727
  Receipt Date: 20180829
  Transmission Date: 20181010
  Serious: Yes (Other)
  Sender: FDA-Public Use
  Company Number: CA-JNJFOC-20180732149

PATIENT
  Age: 39 Year
  Sex: Female
  Weight: 106.59 kg

DRUGS (1)
  1. STELARA [Suspect]
     Active Substance: USTEKINUMAB
     Indication: PSORIASIS
     Dosage: STRENGTH = 90 MG
     Route: 058
     Dates: start: 20121207

REACTIONS (2)
  - Inappropriate schedule of drug administration [Unknown]
  - Helicobacter infection [Unknown]

NARRATIVE: CASE EVENT DATE: 2018
